FAERS Safety Report 17766249 (Version 1)
Quarter: 2020Q2

REPORT INFORMATION
  Report Type: Spontaneous
  Country: US (occurrence: US)
  Receive Date: 20200511
  Receipt Date: 20200511
  Transmission Date: 20200714
  Serious: No
  Sender: FDA-Public Use
  Company Number: US-UPSHER-SMITH LABORATORIES, LLC-2020USL00149

PATIENT
  Age: 39 Year
  Sex: Female
  Weight: 64.85 kg

DRUGS (3)
  1. TOSYMRA [Suspect]
     Active Substance: SUMATRIPTAN
     Indication: MIGRAINE
     Dosage: 10 MG, ONCE
     Route: 045
     Dates: start: 20200124, end: 20200124
  2. EMGALITY [Concomitant]
     Active Substance: GALCANEZUMAB-GNLM
  3. ORTHO MICRONOR [Concomitant]
     Active Substance: NORETHINDRONE

REACTIONS (6)
  - Visual acuity reduced [Recovered/Resolved]
  - Vision blurred [Recovered/Resolved]
  - Burning sensation [Recovered/Resolved]
  - Diplopia [Recovered/Resolved]
  - Heart rate increased [Recovered/Resolved]
  - Application site pain [Recovered/Resolved]

NARRATIVE: CASE EVENT DATE: 20200124
